FAERS Safety Report 15630049 (Version 2)
Quarter: 2020Q3

REPORT INFORMATION
  Report Type: Spontaneous
  Country: CA (occurrence: CA)
  Receive Date: 20181118
  Receipt Date: 20200804
  Transmission Date: 20201102
  Serious: Yes (Other)
  Sender: FDA-Public Use
  Company Number: CA-JNJFOC-20181113586

PATIENT
  Age: 34 Year
  Sex: Female

DRUGS (6)
  1. MOTRIN [Suspect]
     Active Substance: IBUPROFEN
     Indication: PRODUCT USED FOR UNKNOWN INDICATION
     Route: 048
     Dates: start: 19820930
  2. DIAZEPAM. [Concomitant]
     Active Substance: DIAZEPAM
     Indication: PRODUCT USED FOR UNKNOWN INDICATION
     Route: 048
     Dates: start: 19820916
  3. LIBRIUM [Concomitant]
     Active Substance: CHLORDIAZEPOXIDE HYDROCHLORIDE
     Indication: PRODUCT USED FOR UNKNOWN INDICATION
     Route: 048
  4. CLIMACTERON [Concomitant]
     Active Substance: ESTRADIOL BENZOATE\ESTRADIOL DIENANTHATE\TESTOSTERONE ENANTATE BENZILIC ACID HYDRAZONE
     Indication: PRODUCT USED FOR UNKNOWN INDICATION
     Route: 030
  5. BACTRIM [Concomitant]
     Active Substance: SULFAMETHOXAZOLE\TRIMETHOPRIM
     Indication: PRODUCT USED FOR UNKNOWN INDICATION
     Route: 048
     Dates: start: 19820927
  6. HALCION [Concomitant]
     Active Substance: TRIAZOLAM
     Indication: PRODUCT USED FOR UNKNOWN INDICATION
     Route: 048

REACTIONS (2)
  - Vision blurred [Recovered/Resolved]
  - Diplopia [Recovered/Resolved]

NARRATIVE: CASE EVENT DATE: 19821020
